FAERS Safety Report 14907820 (Version 1)
Quarter: 2018Q2

REPORT INFORMATION
  Report Type: Report from Study
  Country: IL (occurrence: IL)
  Receive Date: 20180517
  Receipt Date: 20180517
  Transmission Date: 20180711
  Serious: Yes (Other)
  Sender: FDA-Public Use
  Company Number: IL-TAKEDA-2018TUS017041

PATIENT
  Age: 29 Year
  Sex: Female

DRUGS (1)
  1. VEDOLIZUMAB [Suspect]
     Active Substance: VEDOLIZUMAB
     Indication: COLITIS
     Dosage: 300 MG, Q4WEEKS
     Route: 042
     Dates: start: 20150812

REACTIONS (1)
  - Intestinal fistula [Not Recovered/Not Resolved]
